FAERS Safety Report 20461624 (Version 1)
Quarter: 2022Q1

REPORT INFORMATION
  Report Type: Spontaneous
  Country: US (occurrence: None)
  Receive Date: 20220211
  Receipt Date: 20220211
  Transmission Date: 20220423
  Serious: Yes (Disabling)
  Sender: FDA-Public Use
  Company Number: None

PATIENT
  Age: 70 Year
  Sex: Female
  Weight: 107.1 kg

DRUGS (1)
  1. PRISTIQ EXTENDED-RELEASE [Suspect]
     Active Substance: DESVENLAFAXINE SUCCINATE
     Indication: Depression
     Dosage: FREQUENCY : DAILY;?
     Route: 048
     Dates: end: 20210101

REACTIONS (11)
  - Withdrawal syndrome [None]
  - Nausea [None]
  - Fatigue [None]
  - Muscle spasms [None]
  - Thinking abnormal [None]
  - Abnormal dreams [None]
  - Nightmare [None]
  - Insomnia [None]
  - Loss of personal independence in daily activities [None]
  - Fear of death [None]
  - Impaired quality of life [None]

NARRATIVE: CASE EVENT DATE: 20210214
